FAERS Safety Report 13304848 (Version 1)
Quarter: 2017Q1

REPORT INFORMATION
  Report Type: Spontaneous
  Country: US (occurrence: US)
  Receive Date: 20170308
  Receipt Date: 20170308
  Transmission Date: 20170428
  Serious: No
  Sender: FDA-Public Use
  Company Number: US-DEPOMED, INC.-US-2016DEP012897

PATIENT
  Sex: Male
  Weight: 89.8 kg

DRUGS (3)
  1. GRALISE [Suspect]
     Active Substance: GABAPENTIN
     Indication: NEUROPATHY PERIPHERAL
  2. HYZAAR [Concomitant]
     Active Substance: HYDROCHLOROTHIAZIDE\LOSARTAN POTASSIUM
     Indication: HYPERTENSION
     Dosage: 100/ 25 MG TABLET BY MOUTH IN THE AM
     Route: 048
     Dates: start: 2015, end: 20161201
  3. GRALISE [Suspect]
     Active Substance: GABAPENTIN
     Indication: BACK DISORDER
     Dosage: 1800 MG, QD, IN THE EVENING AFTER MEAL
     Dates: start: 2015, end: 20161201

REACTIONS (5)
  - Adverse event [Not Recovered/Not Resolved]
  - Drug titration error [Not Recovered/Not Resolved]
  - Product use issue [Recovered/Resolved]
  - Somnolence [Not Recovered/Not Resolved]
  - Drug effect variable [Not Recovered/Not Resolved]

NARRATIVE: CASE EVENT DATE: 2015
